FAERS Safety Report 5895366-X (Version None)
Quarter: 2008Q3

REPORT INFORMATION
  Report Type: 
  Country: None (occurrence: None)
  Receive Date: 20080923
  Receipt Date: 20080923
  Transmission Date: 20090109
  Serious: Yes (Hospitalization)
  Sender: FDA-Public Use
  Company Number: None

PATIENT
  Age: 71 Year
  Sex: Male
  Weight: 103 kg

DRUGS (8)
  1. OXALIPLATIN [Suspect]
     Indication: PANCREATIC CARCINOMA
     Dosage: 174 DAYS 1 + 8 Q 8 DA IV
     Route: 042
     Dates: start: 20080909, end: 20080909
  2. SORAFENIB 200 MG TABLETS BAYER PHARMACEUTICAL [Suspect]
     Indication: PANCREATIC CARCINOMA
     Dosage: 200 MG BID DAYS 1- 28 PO
     Route: 048
     Dates: start: 20080909, end: 20080922
  3. FENTANYL [Concomitant]
  4. DILAUDID [Concomitant]
  5. LOSTARAN [Concomitant]
  6. HYDROCHLOROTHIAZIDE [Concomitant]
  7. OMEPRAZOLE [Concomitant]
  8. SENOKOT [Concomitant]

REACTIONS (7)
  - AMNESIA [None]
  - ATRIOVENTRICULAR BLOCK FIRST DEGREE [None]
  - BRAIN SCAN ABNORMAL [None]
  - DISTURBANCE IN ATTENTION [None]
  - FAILURE TO THRIVE [None]
  - INSOMNIA [None]
  - PULMONARY HYPERTENSION [None]
